FAERS Safety Report 8398642-4 (Version None)
Quarter: 2012Q2

REPORT INFORMATION
  Report Type: 
  Country: None (occurrence: None)
  Receive Date: 20120531
  Receipt Date: 20120521
  Transmission Date: 20120825
  Serious: Yes (Other)
  Sender: FDA-Public Use
  Company Number: US-ROCHE-1071197

PATIENT

DRUGS (4)
  1. BONIVA [Suspect]
     Indication: OSTEOPOROSIS
  2. BONIVA [Suspect]
     Indication: OSTEOPENIA
  3. FOSAMAX [Suspect]
     Indication: OSTEOPOROSIS
  4. FOSAMAX [Suspect]
     Indication: OSTEOPENIA

REACTIONS (5)
  - BONE DISORDER [None]
  - STRESS FRACTURE [None]
  - ANXIETY [None]
  - FEMUR FRACTURE [None]
  - LOW TURNOVER OSTEOPATHY [None]
